FAERS Safety Report 25707182 (Version 1)
Quarter: 2025Q3

REPORT INFORMATION
  Report Type: Spontaneous
  Country: EU (occurrence: EU)
  Receive Date: 20250820
  Receipt Date: 20250820
  Transmission Date: 20251021
  Serious: Yes (Other)
  Sender: OTSUKA
  Company Number: EU-MMM-Otsuka-CH6B1VIU

PATIENT
  Sex: Male

DRUGS (1)
  1. SAMSCA [Suspect]
     Active Substance: TOLVAPTAN
     Indication: Product used for unknown indication
     Route: 065

REACTIONS (3)
  - Neoplasm malignant [Unknown]
  - Illness [Unknown]
  - Underdose [Unknown]
